FAERS Safety Report 7023889-9 (Version None)
Quarter: 2010Q4

REPORT INFORMATION
  Report Type: 
  Country: None (occurrence: None)
  Receive Date: 20101001
  Receipt Date: 20100517
  Transmission Date: 20110411
  Serious: Yes (Other)
  Sender: FDA-Public Use
  Company Number: US-ASTRAZENECA-2009SE17371

PATIENT
  Age: 15631 Day
  Sex: Male

DRUGS (16)
  1. SEROQUEL [Suspect]
     Indication: SLEEP DISORDER
     Route: 048
     Dates: start: 20061115, end: 20081201
  2. OMEPRAZOLE [Concomitant]
     Indication: ABDOMINAL PAIN UPPER
     Dates: start: 20081218
  3. OMEPRAZOLE [Concomitant]
     Indication: REFLUX OESOPHAGITIS
     Dates: start: 20081218
  4. HYDROCHLOROTHIAZIDE [Concomitant]
     Indication: HYPERTENSION
     Dates: start: 20070705
  5. INDERAL LA [Concomitant]
     Indication: SINUS TACHYCARDIA
     Dosage: 80 TO 120 MG
     Dates: start: 20070705
  6. INDERAL LA [Concomitant]
     Indication: PALPITATIONS
     Dosage: 80 TO 120 MG
     Dates: start: 20070705
  7. INDERAL LA [Concomitant]
     Indication: HYPERTENSION
     Dosage: 80 TO 120 MG
     Dates: start: 20070705
  8. SYNTHROID [Concomitant]
     Dosage: 25 TO 75 MCG
     Dates: start: 20070705
  9. TEGRETOL [Concomitant]
     Dosage: 200 MG ONE TAB QAM AND TWO TABS QHS
     Dates: start: 20070601
  10. VICODIN [Concomitant]
     Dates: start: 20070705
  11. LAMICTAL [Concomitant]
     Dates: start: 20061115
  12. VIAGRA [Concomitant]
     Dosage: 100 MG 1/2 PO PM
     Route: 048
     Dates: start: 20070705
  13. GEODON [Concomitant]
     Dates: start: 20061115
  14. TRILEPTAL [Concomitant]
     Dates: start: 20061115
  15. LISINOPRIL [Concomitant]
     Dates: start: 20061115
  16. XANAX [Concomitant]
     Route: 048
     Dates: start: 20090924

REACTIONS (4)
  - DIABETES MELLITUS INADEQUATE CONTROL [None]
  - ERECTILE DYSFUNCTION [None]
  - ORGANIC ERECTILE DYSFUNCTION [None]
  - TYPE 2 DIABETES MELLITUS [None]
